FAERS Safety Report 22100345 (Version 2)
Quarter: 2023Q2

REPORT INFORMATION
  Report Type: Other
  Country: GB (occurrence: GB)
  Receive Date: 20230315
  Receipt Date: 20230427
  Transmission Date: 20230722
  Serious: Yes (Other)
  Sender: FDA-Public Use
  Company Number: GB-CELLTRION INC.-2023GB005425

PATIENT

DRUGS (2)
  1. RITUXIMAB [Suspect]
     Active Substance: RITUXIMAB
     Indication: Product used for unknown indication
     Dosage: ADDITIONAL INFO: ROUTE:UNKNOWN
     Route: 065
  2. VENETOCLAX [Suspect]
     Active Substance: VENETOCLAX
     Indication: Product used for unknown indication
     Dosage: 200 MILLIGRAM

REACTIONS (3)
  - Neutropenia [Unknown]
  - Lymphadenopathy [Unknown]
  - Blood lactate dehydrogenase increased [Unknown]
